FAERS Safety Report 7055455-3 (Version None)
Quarter: 2010Q4

REPORT INFORMATION
  Report Type: 
  Country: None (occurrence: None)
  Receive Date: 20101021
  Receipt Date: 20101011
  Transmission Date: 20110411
  Serious: Yes (Other)
  Sender: FDA-Public Use
  Company Number: IR-SANOFI-AVENTIS-2010SA062167

PATIENT
  Age: 14 Year
  Sex: Female

DRUGS (2)
  1. RIFAMPIN [Suspect]
  2. ORAL CONTRACEPTIVE NOS [Interacting]

REACTIONS (2)
  - DRUG INTERACTION [None]
  - VAGINAL HAEMORRHAGE [None]
